FAERS Safety Report 7246125-7 (Version None)
Quarter: 2011Q1

REPORT INFORMATION
  Report Type: 
  Country: None (occurrence: None)
  Receive Date: 20110126
  Receipt Date: 20110119
  Transmission Date: 20110831
  Serious: Yes (Hospitalization)
  Sender: FDA-Public Use
  Company Number: A0908724A

PATIENT
  Sex: Female

DRUGS (1)
  1. PAXIL [Suspect]
     Route: 048
     Dates: start: 20010101, end: 20040101

REACTIONS (6)
  - SOCIAL PHOBIA [None]
  - WITHDRAWAL SYNDROME [None]
  - DIVORCED [None]
  - ALCOHOL USE [None]
  - ANXIETY [None]
  - FAMILY STRESS [None]
